FAERS Safety Report 14406179 (Version 1)
Quarter: 2018Q1

REPORT INFORMATION
  Report Type: Spontaneous
  Country: US (occurrence: US)
  Receive Date: 20180118
  Receipt Date: 20180118
  Transmission Date: 20180509
  Serious: No
  Sender: FDA-Public Use
  Company Number: US-PFIZER INC-2018019102

PATIENT
  Sex: Female

DRUGS (1)
  1. ATORVASTATIN CALCIUM. [Suspect]
     Active Substance: ATORVASTATIN CALCIUM
     Dosage: UNK, DAILY
     Route: 048

REACTIONS (4)
  - Myalgia [Unknown]
  - Fatigue [Unknown]
  - Drug hypersensitivity [Unknown]
  - Arthralgia [Unknown]
